FAERS Safety Report 7591428-X (Version None)
Quarter: 2011Q3

REPORT INFORMATION
  Report Type: 
  Country: None (occurrence: None)
  Receive Date: 20110701
  Receipt Date: 20110701
  Transmission Date: 20111222
  Serious: Yes (Other)
  Sender: FDA-Public Use
  Company Number: None

PATIENT
  Sex: Male

DRUGS (1)
  1. LAMOTRIGINE [Suspect]
     Indication: EPILEPSY
     Dosage: 200 Q8 PO
     Route: 048
     Dates: start: 20110302, end: 20110523

REACTIONS (2)
  - TREMOR [None]
  - PRODUCT SUBSTITUTION ISSUE [None]
